FAERS Safety Report 12903182 (Version 3)
Quarter: 2017Q1

REPORT INFORMATION
  Report Type: Spontaneous
  Country: US (occurrence: US)
  Receive Date: 20161102
  Receipt Date: 20170111
  Transmission Date: 20170428
  Serious: Yes (Death, Hospitalization, Other)
  Sender: FDA-Public Use
  Company Number: US-PFIZER INC-2016503498

PATIENT
  Age: 54 Year
  Sex: Female
  Weight: 58.96 kg

DRUGS (13)
  1. IBRANCE [Suspect]
     Active Substance: PALBOCICLIB
     Indication: BREAST CANCER METASTATIC
     Dosage: 125 MG, CYCLIC (DAILY FOR 21 DAYS, FOLLOWED BY 7 DAY REST)
     Route: 048
     Dates: start: 20160713, end: 20160914
  2. SENOKOT-S [Concomitant]
     Active Substance: DOCUSATE SODIUM\SENNOSIDES
     Dosage: 2 DF, DAILY[DOCUSATE SODIUM 8.6 MG] / [SENNA ALEXANDRINA 50 MG]
     Route: 048
  3. LORAZEPAM. [Concomitant]
     Active Substance: LORAZEPAM
     Indication: ANXIETY
     Dosage: 0.5 ML, AS NEEDED [TAKE 0.5 ML BY MOUTH 3 TIMES DAILY AS NEEDED]
     Route: 048
  4. PERCOCET [Concomitant]
     Active Substance: ACETAMINOPHEN\OXYCODONE HYDROCHLORIDE
     Dosage: 1 DF, AS NEEDED [OXYCODONE HYDROCHLORIDE 5 MG]/[PARACETAMOL 325 MG], (5-325 MG 1 TAB EVERY 4 HOUR)
     Route: 048
  5. SALAGEN [Concomitant]
     Active Substance: PILOCARPINE HYDROCHLORIDE
     Dosage: 5 MG, EVERY 4 HRS[TAKE 5 MG BY MOUTH EVERY 4 HOURS]
     Route: 048
  6. SYNTHROID [Concomitant]
     Active Substance: LEVOTHYROXINE SODIUM
     Dosage: 112 UG, 1X/DAY [AT BEDTIME REASONS: PT REPORTS THAT SHE ONLY TAKES DURING WEEKDAYS]
     Route: 048
  7. COMPAZINE [Concomitant]
     Active Substance: PROCHLORPERAZINE MALEATE
     Indication: NAUSEA
     Dosage: 25 MG, AS NEEDED [INSERT 1 SUPPOSITORY INTO THE RECTUM EVERY 12 HOURS AS NEEDED]
     Route: 054
  8. XANAX [Concomitant]
     Active Substance: ALPRAZOLAM
     Indication: ANXIETY
     Dosage: 0.5 MG, AS NEEDED, (1 TAB BY MOUTH 3 TIMES DAILY AS NEEDED)
     Route: 048
  9. FEMARA [Concomitant]
     Active Substance: LETROZOLE
     Indication: BREAST CANCER
     Dosage: 2.5 MG, 1X/DAY, (TAKE 1 TAB BY MOUTH ONCE DAILY)
     Route: 048
     Dates: start: 20160621, end: 20160914
  10. COMPAZINE [Concomitant]
     Active Substance: PROCHLORPERAZINE MALEATE
     Indication: VOMITING
  11. DURAGESIC [Concomitant]
     Active Substance: FENTANYL
     Dosage: UNK [25 MCG/HR PATCH APPLY 1 PATCH TO SKIN EVERY 3 DAYS]
     Route: 061
  12. ZOFRAN ODT [Concomitant]
     Active Substance: ONDANSETRON HYDROCHLORIDE
     Dosage: 8 MG, AS NEEDED, (TAKE 1 TAB BY MOUTH EVERY 6 HOURS AS NEEDED)
     Route: 048
  13. EFFEXOR [Concomitant]
     Active Substance: VENLAFAXINE HYDROCHLORIDE
     Dosage: 75 MG, DAILY[DAILY WITH DINNER]
     Route: 048

REACTIONS (8)
  - Vomiting [Unknown]
  - Abdominal pain [Unknown]
  - Acute hepatic failure [Unknown]
  - Nausea [Unknown]
  - Ascites [Unknown]
  - Pancytopenia [Unknown]
  - Neoplasm progression [Fatal]
  - Constipation [Unknown]

NARRATIVE: CASE EVENT DATE: 20160913
